FAERS Safety Report 10903815 (Version 3)
Quarter: 2015Q4

REPORT INFORMATION
  Report Type: Spontaneous
  Country: US (occurrence: US)
  Receive Date: 20150311
  Receipt Date: 20151214
  Transmission Date: 20160304
  Serious: Yes (Other)
  Sender: FDA-Public Use
  Company Number: US-BAYER-2015-034047

PATIENT
  Age: 29 Year
  Sex: Female

DRUGS (1)
  1. SKYLA [Suspect]
     Active Substance: LEVONORGESTREL
     Indication: CONTRACEPTION
     Dosage: 14 MCG/24HR, CONT
     Route: 015
     Dates: start: 201502, end: 201510

REACTIONS (4)
  - Vaginal haemorrhage [None]
  - Menstruation irregular [None]
  - Adnexa uteri pain [None]
  - Haemorrhagic ovarian cyst [None]

NARRATIVE: CASE EVENT DATE: 2015
